FAERS Safety Report 8292145-3 (Version None)
Quarter: 2012Q2

REPORT INFORMATION
  Report Type: 
  Country: None (occurrence: None)
  Receive Date: 20120417
  Receipt Date: 20110804
  Transmission Date: 20120825
  Serious: No
  Sender: FDA-Public Use
  Company Number: US-ASTRAZENECA-2011SE46823

PATIENT
  Age: 55 Year
  Sex: Female
  Weight: 40.4 kg

DRUGS (4)
  1. NEXIUM [Suspect]
     Route: 048
  2. DULCOLAX [Concomitant]
  3. NEXIUM [Suspect]
     Indication: GASTROOESOPHAGEAL REFLUX DISEASE
     Route: 048
     Dates: start: 20110701
  4. PRILOSEC OTC [Suspect]
     Route: 048

REACTIONS (6)
  - FEELING ABNORMAL [None]
  - FATIGUE [None]
  - SELF-MEDICATION [None]
  - DIZZINESS [None]
  - THROAT IRRITATION [None]
  - DRUG PRESCRIBING ERROR [None]
